FAERS Safety Report 25503577 (Version 1)
Quarter: 2025Q3

REPORT INFORMATION
  Report Type: Spontaneous
  Country: US (occurrence: None)
  Receive Date: 20250701
  Receipt Date: 20250701
  Transmission Date: 20251021
  Serious: Yes (Death)
  Sender: FDA-CTU
  Company Number: None

PATIENT
  Age: 73 Year
  Sex: Female
  Weight: 83.1 kg

DRUGS (8)
  1. UNSPECIFIED INGREDIENT [Suspect]
     Active Substance: UNSPECIFIED INGREDIENT
  2. ANAPROX DS 550MG TABLETS [Concomitant]
  3. DEXAMETHASONE 2MG TABLETS [Concomitant]
  4. FLONASE 50MCG NAS SPRAY RX ~2DSPR [Concomitant]
  5. IPRATROPlAL 0.5/SMG !NH SL/ML [Concomitant]
  6. MULTIPLE VITAMIN TABLETS [Concomitant]
  7. TRAZODONE [Concomitant]
     Active Substance: TRAZODONE HYDROCHLORIDE
  8. ZYRtec 10MG TABLETS OTC [Concomitant]

REACTIONS (1)
  - Death [None]
